FAERS Safety Report 4654669-7 (Version None)
Quarter: 2005Q2

REPORT INFORMATION
  Report Type: 
  Country: None (occurrence: None)
  Receive Date: 20050503
  Receipt Date: 20050503
  Transmission Date: 20051028
  Serious: Yes (Other)
  Sender: FDA-Public Use
  Company Number: None

PATIENT
  Sex: Male
  Weight: 70.7611 kg

DRUGS (1)
  1. AMBIEN [Suspect]
     Indication: SLEEP DISORDER
     Dosage: 10MG/DAY (ORAL)
     Route: 048
     Dates: start: 20050215, end: 20050221

REACTIONS (3)
  - DEPRESSION [None]
  - INSOMNIA [None]
  - REBOUND EFFECT [None]
